FAERS Safety Report 8770793 (Version 1)
Quarter: 2012Q4

REPORT INFORMATION
  Report Type: 
  Country: US (occurrence: US)
  Receive Date: 20120906
  Receipt Date: 20120906
  Transmission Date: 20130627
  Serious: Yes (Hospitalization)
  Sender: FDA-Public Use
  Company Number: US-SANOFI-AVENTIS-2012SA061847

PATIENT
  Age: 85 Year
  Sex: Male

DRUGS (4)
  1. LANTUS [Suspect]
     Indication: TYPE II DIABETES MELLITUS
     Route: 058
  2. LANTUS [Suspect]
     Indication: TYPE II DIABETES MELLITUS
     Dosage: Dose:12 unit(s)
     Route: 058
  3. SOLOSTAR [Suspect]
     Indication: TYPE II DIABETES MELLITUS
  4. DRUG USED IN DIABETES [Suspect]
     Route: 048

REACTIONS (2)
  - Pneumonia [Unknown]
  - Blood glucose increased [Unknown]
